FAERS Safety Report 9225077 (Version 1)
Quarter: 2013Q2

REPORT INFORMATION
  Report Type: Spontaneous
  Country: JP (occurrence: JP)
  Receive Date: 20130411
  Receipt Date: 20130411
  Transmission Date: 20140414
  Serious: Yes (Other)
  Sender: FDA-Public Use
  Company Number: JP-ASTRAZENECA-2013SE21959

PATIENT
  Sex: 0

DRUGS (1)
  1. ANAPEINE [Suspect]
     Dosage: 2MG/ML
     Route: 065

REACTIONS (1)
  - Atrioventricular block [Unknown]
